FAERS Safety Report 4363496-X (Version None)
Quarter: 2004Q2

REPORT INFORMATION
  Report Type: 
  Country: None (occurrence: None)
  Receive Date: 20040517
  Receipt Date: 20040510
  Transmission Date: 20050107
  Serious: No
  Sender: FDA-Public Use
  Company Number: S04-USA-01622-01

PATIENT
  Age: 79 Year
  Sex: Male

DRUGS (11)
  1. NAMENDA [Suspect]
     Indication: DEMENTIA ALZHEIMER'S TYPE
     Dosage: 5 MG QD PO
     Route: 048
     Dates: start: 20040321
  2. LEXAPRO [Concomitant]
  3. ZYPREXA [Concomitant]
  4. EXELON [Concomitant]
  5. PRILOSEC [Concomitant]
  6. ALLEGRA [Concomitant]
  7. LIPITOR [Concomitant]
  8. MULTI-VITAMIN [Concomitant]
  9. EFFEXOR [Concomitant]
  10. OXAPROZIN [Concomitant]
  11. ASPIRIN [Concomitant]

REACTIONS (1)
  - URTICARIA [None]
